FAERS Safety Report 7315150-X (Version None)
Quarter: 2011Q1

REPORT INFORMATION
  Report Type: 
  Country: None (occurrence: None)
  Receive Date: 20110225
  Receipt Date: 20110216
  Transmission Date: 20110831
  Serious: Yes (Hospitalization, Disabling, Other)
  Sender: FDA-Public Use
  Company Number: US-ROCHE-458430

PATIENT
  Sex: Male
  Weight: 74.8 kg

DRUGS (1)
  1. ACCUTANE [Suspect]
     Dosage: INDICATION REPORTED AS ACNE VULGARIS/CYSTIC.
     Route: 048
     Dates: start: 20000324, end: 20000811

REACTIONS (14)
  - VIITH NERVE PARALYSIS [None]
  - HEADACHE [None]
  - CHEILITIS [None]
  - EPISTAXIS [None]
  - NASAL DRYNESS [None]
  - INFLAMMATORY BOWEL DISEASE [None]
  - DRY SKIN [None]
  - VISION BLURRED [None]
  - FATIGUE [None]
  - DRY EYE [None]
  - BLOOD TRIGLYCERIDES INCREASED [None]
  - SUNBURN [None]
  - CROHN'S DISEASE [None]
  - BLOOD CHOLESTEROL INCREASED [None]
